FAERS Safety Report 8474028-9 (Version None)
Quarter: 2012Q2

REPORT INFORMATION
  Report Type: 
  Country: None (occurrence: None)
  Receive Date: 20120628
  Receipt Date: 20120412
  Transmission Date: 20120825
  Serious: Yes (Life-Threatening)
  Sender: FDA-Public Use
  Company Number: US-MYLANLABS-2012S1007650

PATIENT
  Age: 57 Year
  Sex: Male

DRUGS (6)
  1. LORAZEPAM [Concomitant]
  2. HALDOL [Concomitant]
  3. ZOLOFT [Concomitant]
  4. CLOZAPINE [Suspect]
     Indication: SCHIZOPHRENIA
     Route: 048
     Dates: start: 20120328, end: 20120409
  5. TRAZODONE HCL [Concomitant]
  6. DEPAKOTE [Concomitant]

REACTIONS (2)
  - LEUKOPENIA [None]
  - AGRANULOCYTOSIS [None]
